FAERS Safety Report 12808476 (Version 2)
Quarter: 2016Q4

REPORT INFORMATION
  Report Type: Spontaneous
  Country: US (occurrence: US)
  Receive Date: 20161004
  Receipt Date: 20161004
  Transmission Date: 20170207
  Serious: No
  Sender: FDA-Public Use
  Company Number: US-ASTRAZENECA-2016SF02412

PATIENT
  Age: 45 Year
  Sex: Female

DRUGS (3)
  1. LINZESS [Concomitant]
     Active Substance: LINACLOTIDE
  2. AMITIZA [Concomitant]
     Active Substance: LUBIPROSTONE
  3. MOVANTIK [Suspect]
     Active Substance: NALOXEGOL OXALATE
     Indication: DRUG WITHDRAWAL MAINTENANCE THERAPY
     Dosage: 25.0MG UNKNOWN
     Route: 048

REACTIONS (2)
  - Impaired gastric emptying [Unknown]
  - Constipation [Unknown]
